FAERS Safety Report 8499657-8 (Version None)
Quarter: 2012Q3

REPORT INFORMATION
  Report Type: 
  Country: None (occurrence: None)
  Receive Date: 20120710
  Receipt Date: 20120705
  Transmission Date: 20120928
  Serious: No
  Sender: FDA-Public Use
  Company Number: US-PFIZER INC-2012162721

PATIENT
  Sex: Female
  Weight: 49.887 kg

DRUGS (2)
  1. XANAX [Suspect]
     Dosage: 0.25 MG, AS NEEDED
     Route: 048
  2. XANAX [Suspect]
     Indication: ANXIETY
     Dosage: 0.25 MG, 2X/DAY
     Route: 048

REACTIONS (1)
  - SOMNOLENCE [None]
